FAERS Safety Report 25872963 (Version 1)
Quarter: 2025Q4

REPORT INFORMATION
  Report Type: Spontaneous
  Country: EU (occurrence: EU)
  Receive Date: 20251002
  Receipt Date: 20251002
  Transmission Date: 20260118
  Serious: Yes (Other)
  Sender: SAMSUNG BIOEPIS
  Company Number: None

PATIENT
  Age: 21 Year
  Sex: Male
  Weight: 58.7 kg

DRUGS (1)
  1. INFLIXIMAB [Suspect]
     Active Substance: INFLIXIMAB
     Indication: Crohn^s disease
     Route: 042
     Dates: start: 202004, end: 20250708

REACTIONS (7)
  - Haematochezia [Unknown]
  - Condition aggravated [Unknown]
  - Frequent bowel movements [Unknown]
  - Abdominal pain [Unknown]
  - Loss of therapeutic response [Unknown]
  - Faecal calprotectin increased [Unknown]
  - C-reactive protein increased [Unknown]

NARRATIVE: CASE EVENT DATE: 20250709
